FAERS Safety Report 5844815-1 (Version None)
Quarter: 2008Q3

REPORT INFORMATION
  Report Type: 
  Country: None (occurrence: None)
  Receive Date: 20080814
  Receipt Date: 20080812
  Transmission Date: 20090109
  Serious: Yes (Disabling)
  Sender: FDA-Public Use
  Company Number: US-BRISTOL-MYERS SQUIBB COMPANY-14230270

PATIENT
  Age: 68 Year
  Sex: Female

DRUGS (9)
  1. ORENCIA [Suspect]
     Indication: RHEUMATOID ARTHRITIS
     Dosage: 3 INF: 16MAY08,30MAY08 + 09JUN08,  FREQUENCY 0,2,4 WEEKS FOR LOADING DOSE, Q 4 WKS AFTER THAT
     Route: 042
     Dates: start: 20080516
  2. IBUPROFEN [Suspect]
  3. METHOTREXATE [Suspect]
  4. LIPITOR [Suspect]
  5. ACIPHEX [Suspect]
  6. CALCIUM + VITAMIN D [Concomitant]
  7. ADVIL [Concomitant]
  8. ADVIL [Concomitant]
  9. TYLENOL [Concomitant]

REACTIONS (1)
  - DEAFNESS NEUROSENSORY [None]
